FAERS Safety Report 6182599-0 (Version None)
Quarter: 2009Q2

REPORT INFORMATION
  Report Type: 
  Country: None (occurrence: None)
  Receive Date: 20090505
  Receipt Date: 20090420
  Transmission Date: 20091009
  Serious: Yes (Other)
  Sender: FDA-Public Use
  Company Number: 2009S1006932

PATIENT
  Age: 67 Year
  Sex: Male
  Weight: 80 kg

DRUGS (4)
  1. MIRTAZAPINE [Suspect]
     Indication: DEPRESSION
     Dosage: 30 MG; ORAL
     Route: 048
     Dates: start: 20090201
  2. AMLODIPINE [Concomitant]
  3. GABAPENTIN [Concomitant]
  4. TRAMADOL HCL [Concomitant]

REACTIONS (2)
  - NIGHTMARE [None]
  - RAPID EYE MOVEMENTS SLEEP ABNORMAL [None]
